FAERS Safety Report 8169770-3 (Version None)
Quarter: 2012Q1

REPORT INFORMATION
  Report Type: 
  Country: None (occurrence: None)
  Receive Date: 20120228
  Receipt Date: 20120217
  Transmission Date: 20120608
  Serious: Yes (Life-Threatening, Hospitalization)
  Sender: FDA-Public Use
  Company Number: DE-BRISTOL-MYERS SQUIBB COMPANY-16364507

PATIENT
  Age: 71 Year
  Sex: Male
  Weight: 81 kg

DRUGS (17)
  1. ASPIRIN [Concomitant]
  2. RAMIPRIL [Concomitant]
     Dosage: 1DF:5 UNIT NOS
  3. FENTANYL [Concomitant]
  4. METOPROLOL TARTRATE [Concomitant]
     Dosage: 1DF:47.5 UNIT NOS
  5. GABAPENTIN [Concomitant]
     Dosage: 1DF:200 UNIT NOS
  6. NOREPINEPHRINE BITARTRATE [Concomitant]
  7. REYATAZ [Suspect]
     Indication: HIV INFECTION
     Dosage: 1DF:300 UNIT NO REYATAZ 150
     Route: 048
  8. NORVIR [Suspect]
     Indication: HIV INFECTION
     Dosage: 1DF:100 UNIT NOS
     Route: 048
  9. ABACAVIR SULFATE/LAMIVUDINE [Suspect]
     Indication: HIV INFECTION
     Dosage: 1DF:600/300 UNIT NOS
     Route: 048
  10. DOXAZOSIN [Concomitant]
     Dosage: 1DF:2 UNIT NOS
  11. HYDROCHLOROTHIAZIDE [Concomitant]
     Dosage: 1DF:12.5 UNIT NOS
  12. ESOMEPRAZOLE SODIUM [Concomitant]
     Dosage: 1DF:40 UNIT NOS
  13. TORSEMIDE [Concomitant]
     Dosage: 1DF:20 UNIT NOS 1-0.5-0
  14. ZOPICLONE [Concomitant]
     Dosage: 1DF:7.5 UNIT NOS
  15. MIDAZOLAM [Concomitant]
  16. LINEZOLID [Concomitant]
     Dosage: 1DF:600 UNIT NOS
  17. PROPOFOL [Concomitant]

REACTIONS (1)
  - PNEUMONIA [None]
